FAERS Safety Report 11348437 (Version 1)
Quarter: 2015Q3

REPORT INFORMATION
  Report Type: Spontaneous
  Country: PL (occurrence: PL)
  Receive Date: 20150806
  Receipt Date: 20150806
  Transmission Date: 20151125
  Serious: Yes (Hospitalization)
  Sender: FDA-Public Use
  Company Number: PHHY2015PL091380

PATIENT
  Age: 4 Year
  Sex: Male

DRUGS (4)
  1. LAMOTRIGINE. [Suspect]
     Active Substance: LAMOTRIGINE
     Indication: EPILEPSY
     Route: 065
  2. VALPROIC ACID. [Concomitant]
     Active Substance: VALPROIC ACID
     Indication: EPILEPSY
     Route: 065
  3. TOPIRAMATE. [Concomitant]
     Active Substance: TOPIRAMATE
     Indication: EPILEPSY
     Route: 065
  4. LEVETIRACETAM. [Concomitant]
     Active Substance: LEVETIRACETAM
     Indication: EPILEPSY
     Route: 065

REACTIONS (18)
  - Swelling [Recovering/Resolving]
  - Hepatomegaly [Recovering/Resolving]
  - Epstein-Barr virus infection [Recovering/Resolving]
  - Neutropenia [Recovering/Resolving]
  - Atrophy [Recovering/Resolving]
  - Pyrexia [Recovering/Resolving]
  - Hyporeflexia [Recovering/Resolving]
  - Oliguria [Unknown]
  - Toxic epidermal necrolysis [Recovering/Resolving]
  - Drug resistance [Recovering/Resolving]
  - Vomiting [Recovering/Resolving]
  - Mental retardation [Recovering/Resolving]
  - Stomatitis [Recovering/Resolving]
  - Electrolyte imbalance [Recovering/Resolving]
  - Thrombocytopenia [Recovering/Resolving]
  - Hypoalbuminaemia [Recovering/Resolving]
  - Erythema [Recovering/Resolving]
  - Lymphopenia [Recovering/Resolving]
